FAERS Safety Report 24126083 (Version 1)
Quarter: 2024Q3

REPORT INFORMATION
  Report Type: Spontaneous
  Country: CA (occurrence: CA)
  Receive Date: 20240723
  Receipt Date: 20240723
  Transmission Date: 20241017
  Serious: Yes (Other)
  Sender: ABBVIE
  Company Number: CA-ABBVIE-5844533

PATIENT
  Sex: Female

DRUGS (1)
  1. HUMIRA [Suspect]
     Active Substance: ADALIMUMAB
     Indication: Crohn^s disease
     Route: 058

REACTIONS (9)
  - Seizure [Unknown]
  - Impaired work ability [Unknown]
  - Osteoarthritis [Unknown]
  - Abdominal abscess [Unknown]
  - Drug hypersensitivity [Unknown]
  - Wound haemorrhage [Unknown]
  - Purulent discharge [Unknown]
  - Social problem [Unknown]
  - Macular degeneration [Unknown]

NARRATIVE: CASE EVENT DATE: 20230627
